FAERS Safety Report 8166592-4 (Version None)
Quarter: 2012Q1

REPORT INFORMATION
  Report Type: 
  Country: None (occurrence: None)
  Receive Date: 20120223
  Receipt Date: 20120223
  Transmission Date: 20120608
  Serious: Yes (Hospitalization)
  Sender: FDA-Public Use
  Company Number: None

PATIENT
  Age: 52 Year
  Sex: Female
  Weight: 81.1939 kg

DRUGS (10)
  1. COMPAZINE [Concomitant]
  2. OXYCODONE HCL [Concomitant]
  3. CLARITHROMYCIN [Concomitant]
  4. MULTI-VITAMINS [Concomitant]
  5. DECADRON [Concomitant]
  6. ATIVAN [Concomitant]
  7. NEUPOGEN [Concomitant]
  8. LOVENOX [Concomitant]
  9. POMALIDOMIDE [Suspect]
     Indication: MULTIPLE MYELOMA
     Dosage: 4MG, DAYS 1-21, ORAL
     Route: 048
     Dates: start: 20110303, end: 20120221
  10. BACTRIM [Concomitant]

REACTIONS (7)
  - SPEECH DISORDER [None]
  - DEHYDRATION [None]
  - MENTAL STATUS CHANGES [None]
  - FATIGUE [None]
  - HEADACHE [None]
  - VOMITING [None]
  - BLOOD PRESSURE SYSTOLIC INCREASED [None]
